FAERS Safety Report 8516775-6 (Version None)
Quarter: 2012Q2

REPORT INFORMATION
  Report Type: 
  Country: None (occurrence: None)
  Receive Date: 20120406
  Receipt Date: 20100219
  Transmission Date: 20120825
  Serious: Yes (Hospitalization, Other)
  Sender: FDA-Public Use
  Company Number: PHHY2010US02959

PATIENT
  Age: 73 Year
  Sex: Female

DRUGS (9)
  1. PRILOSEC [Concomitant]
  2. CLONIDINE [Concomitant]
  3. COZAAR [Concomitant]
  4. FOLIC ACID [Concomitant]
  5. HYDRALAZINE HCL [Concomitant]
  6. MINOXIDIL [Concomitant]
  7. LASIX [Concomitant]
  8. TASIGNA [Suspect]
     Indication: CHRONIC MYELOID LEUKAEMIA
     Dosage: 400 MG, Q12H, ORAL
     Route: 048
  9. ALBUTEROL [Concomitant]

REACTIONS (3)
  - BLOOD PRESSURE INCREASED [None]
  - CONCOMITANT DISEASE AGGRAVATED [None]
  - PULMONARY OEDEMA [None]
